FAERS Safety Report 16895251 (Version 3)
Quarter: 2020Q1

REPORT INFORMATION
  Report Type: Spontaneous
  Country: US (occurrence: US)
  Receive Date: 20191008
  Receipt Date: 20200302
  Transmission Date: 20200409
  Serious: Yes (Other)
  Sender: FDA-Public Use
  Company Number: US-BAYER-2019-176869

PATIENT
  Age: 19 Year
  Sex: Female

DRUGS (3)
  1. GADAVIST [Suspect]
     Active Substance: GADOBUTROL
     Indication: MAGNETIC RESONANCE IMAGING BRAIN
     Dosage: 6 ML, ONCE
     Route: 042
     Dates: start: 20190327, end: 20190327
  2. GADAVIST [Suspect]
     Active Substance: GADOBUTROL
     Indication: MIGRAINE
  3. GADAVIST [Suspect]
     Active Substance: GADOBUTROL
     Indication: VISUAL IMPAIRMENT

REACTIONS (4)
  - Contrast media allergy [None]
  - Palpitations [Not Recovered/Not Resolved]
  - Dyspnoea [None]
  - Arrhythmia [Not Recovered/Not Resolved]

NARRATIVE: CASE EVENT DATE: 20190327
